FAERS Safety Report 7763396-9 (Version None)
Quarter: 2011Q3

REPORT INFORMATION
  Report Type: 
  Country: None (occurrence: None)
  Receive Date: 20110920
  Receipt Date: 20110913
  Transmission Date: 20111222
  Serious: Yes (Death)
  Sender: FDA-Public Use
  Company Number: JP-GENZYME-FLUD-1001357

PATIENT
  Sex: Male

DRUGS (13)
  1. FLUDARA [Suspect]
     Indication: HODGKIN'S DISEASE
  2. ATG FRESENIUS [Suspect]
     Indication: HODGKIN'S DISEASE
     Dosage: 2 MG/KG, DAILY ON DAYS -4 TO -1
     Route: 042
  3. TACROLIMUS [Concomitant]
     Indication: PROPHYLAXIS AGAINST GRAFT VERSUS HOST DISEASE
     Dosage: 0.02 MG/KG/DAY BEGINNING ON DAY -1
     Route: 042
  4. AMPHOTERICIN B [Concomitant]
     Indication: ANTIBIOTIC PROPHYLAXIS
     Dosage: UNK
     Route: 048
  5. COTRIM [Concomitant]
     Indication: ANTIFUNGAL PROPHYLAXIS
     Dosage: GIVEN AT LEAST 1 YEAR
  6. FLUDARA [Suspect]
     Indication: BONE MARROW CONDITIONING REGIMEN
     Dosage: 30 MG/M2, DAYS -6 TO -4
     Route: 042
  7. ACYCLOVIR [Concomitant]
     Indication: ANTIVIRAL TREATMENT
     Dosage: 1000 MG, QD
     Route: 065
  8. ATG FRESENIUS [Suspect]
     Indication: BONE MARROW CONDITIONING REGIMEN
     Dosage: BEFORE TRANSPLANT
     Route: 065
  9. VANCOMYCIN [Concomitant]
     Indication: ANTIBIOTIC PROPHYLAXIS
     Dosage: UNK
     Route: 048
  10. CIPROFLOXACIN [Concomitant]
     Indication: ANTIBIOTIC PROPHYLAXIS
     Dosage: UNK
     Route: 048
  11. IMMUNE GLOBULIN NOS [Concomitant]
     Indication: PRODUCT USED FOR UNKNOWN INDICATION
     Dosage: MINIMUM 100 MG/KG EVERY 2 WEEKS UNTIL DAY 100
     Route: 042
  12. GANCICLOVIR [Concomitant]
     Indication: ANTIVIRAL PROPHYLAXIS
     Dosage: 2.5 MG/KG, TID FROM DAY -10 TO DAY -3
     Route: 065
  13. METHYLPREDNISOLONE [Concomitant]
     Indication: PROPHYLAXIS AGAINST GRAFT VERSUS HOST DISEASE
     Dosage: 1 MG/KG/DAY FROM DAY -4
     Route: 042

REACTIONS (1)
  - ENTEROBACTER PNEUMONIA [None]
